FAERS Safety Report 6679321-8 (Version None)
Quarter: 2010Q2

REPORT INFORMATION
  Report Type: 
  Country: None (occurrence: None)
  Receive Date: 20100413
  Receipt Date: 20100401
  Transmission Date: 20101027
  Serious: Yes (Hospitalization)
  Sender: FDA-Public Use
  Company Number: GB-ELI_LILLY_AND_COMPANY-GB201003005989

PATIENT
  Sex: Male

DRUGS (2)
  1. PEMETREXED [Suspect]
     Dosage: 890 MG, EVERY 3 WEEKS
     Route: 042
     Dates: start: 20091008
  2. THERAPEUTIC RADIOPHARMACEUTICALS [Concomitant]
     Indication: BACK PAIN

REACTIONS (1)
  - BACK PAIN [None]
